FAERS Safety Report 7558320-8 (Version None)
Quarter: 2011Q2

REPORT INFORMATION
  Report Type: 
  Country: None (occurrence: None)
  Receive Date: 20110620
  Receipt Date: 20110608
  Transmission Date: 20111010
  Serious: Yes (Other)
  Sender: FDA-Public Use
  Company Number: US-ELI_LILLY_AND_COMPANY-US201106003052

PATIENT
  Age: 51 Year
  Sex: Female

DRUGS (1)
  1. XIGRIS [Suspect]
     Dosage: 20 MG, UNKNOWN
     Route: 065
     Dates: start: 20110607

REACTIONS (1)
  - CHEST TUBE INSERTION [None]
